FAERS Safety Report 15345178 (Version 3)
Quarter: 2018Q3

REPORT INFORMATION
  Report Type: Report from Study
  Country: US (occurrence: US)
  Receive Date: 20180903
  Receipt Date: 20180929
  Transmission Date: 20181010
  Serious: Yes (Other)
  Sender: FDA-Public Use
  Company Number: US-TEVA-2018-US-949126

PATIENT
  Age: 52 Year
  Sex: Male

DRUGS (1)
  1. COPAXONE [Suspect]
     Active Substance: GLATIRAMER ACETATE
     Indication: MULTIPLE SCLEROSIS
     Route: 058
     Dates: start: 20180808, end: 20180820

REACTIONS (8)
  - Tonsillitis [Unknown]
  - Scar [Unknown]
  - Nephrolithiasis [Recovered/Resolved]
  - Fatigue [Unknown]
  - Gastrointestinal injury [Unknown]
  - Upper gastrointestinal haemorrhage [Recovered/Resolved]
  - Laryngitis [Unknown]
  - Haematemesis [Unknown]

NARRATIVE: CASE EVENT DATE: 20180826
